FAERS Safety Report 4682972-3 (Version None)
Quarter: 2005Q2

REPORT INFORMATION
  Report Type: 
  Country: None (occurrence: None)
  Receive Date: 20050602
  Receipt Date: 20050209
  Transmission Date: 20051028
  Serious: No
  Sender: FDA-Public Use
  Company Number: USA050290384

PATIENT
  Age: 33 Year
  Sex: Female

DRUGS (3)
  1. CYMBALTA [Suspect]
     Indication: STRESS
     Dosage: 60 MG/1 DAY
     Dates: start: 20041124
  2. SOMA [Concomitant]
  3. DARVOCET-N 100 [Concomitant]

REACTIONS (6)
  - FULL BLOOD COUNT DECREASED [None]
  - METRORRHAGIA [None]
  - PAIN IN JAW [None]
  - SWOLLEN TONGUE [None]
  - VAGINAL HAEMORRHAGE [None]
  - YAWNING [None]
